FAERS Safety Report 26044394 (Version 1)
Quarter: 2025Q4

REPORT INFORMATION
  Report Type: Other
  Country: CA (occurrence: CA)
  Receive Date: 20251114
  Receipt Date: 20251114
  Transmission Date: 20260117
  Serious: Yes (Other)
  Sender: ARCUTIS
  Company Number: CA-ARCUTIS BIOTHERAPEUTICS INC-2025AER000846

PATIENT
  Age: 47 Year
  Sex: Female

DRUGS (1)
  1. ZORYVE [Suspect]
     Active Substance: ROFLUMILAST
     Indication: Pruritus
     Dosage: UNK, QD
     Route: 061

REACTIONS (3)
  - Respiratory distress [Recovering/Resolving]
  - Diarrhoea [Recovering/Resolving]
  - Off label use [Unknown]
